FAERS Safety Report 8465087 (Version 2)
Quarter: 2012Q4

REPORT INFORMATION
  Report Type: 
  Country: US (occurrence: US)
  Receive Date: 20120319
  Receipt Date: 20121205
  Transmission Date: 20130627
  Serious: Yes (Other)
  Sender: FDA-Public Use
  Company Number: US-PFIZER INC-2012067453

PATIENT
  Age: 25 Year
  Sex: Female

DRUGS (2)
  1. NORGESTREL,ETHINYL ESTRADIOL,PLACEBO [Suspect]
     Indication: CONTRACEPTION
     Dosage: UNK
  2. NORGESTREL,ETHINYL ESTRADIOL,PLACEBO [Suspect]
     Dosage: UNK

REACTIONS (3)
  - Product quality issue [Unknown]
  - Drug ineffective [Unknown]
  - Unintended pregnancy [Unknown]
